FAERS Safety Report 25276976 (Version 1)
Quarter: 2025Q2

REPORT INFORMATION
  Report Type: Report from Study
  Country: US (occurrence: US)
  Receive Date: 20250507
  Receipt Date: 20250507
  Transmission Date: 20250717
  Serious: Yes (Other)
  Sender: TAKEDA
  Company Number: US-TAKEDA-2022TUS070286

PATIENT
  Age: 64 Year
  Sex: Female

DRUGS (4)
  1. VONICOG ALFA [Suspect]
     Active Substance: VONICOG ALFA
     Indication: Product used for unknown indication
     Dosage: 4200 INTERNATIONAL UNIT, Q72H
  2. VONICOG ALFA [Suspect]
     Active Substance: VONICOG ALFA
  3. VONICOG ALFA [Suspect]
     Active Substance: VONICOG ALFA
     Dosage: 4020 INTERNATIONAL UNIT, Q72H
  4. VONICOG ALFA [Suspect]
     Active Substance: VONICOG ALFA

REACTIONS (3)
  - Haemarthrosis [Unknown]
  - Ingrowing nail [Unknown]
  - Extra dose administered [Unknown]

NARRATIVE: CASE EVENT DATE: 20220925
